FAERS Safety Report 5332672-1 (Version None)
Quarter: 2007Q2

REPORT INFORMATION
  Report Type: 
  Country: None (occurrence: None)
  Receive Date: 20070521
  Receipt Date: 20070507
  Transmission Date: 20071010
  Serious: Yes (Hospitalization)
  Sender: FDA-Public Use
  Company Number: 2007P1000231

PATIENT
  Age: 22 Year
  Sex: Female

DRUGS (2)
  1. NICARDIPINE HYDROCHLORIDE [Suspect]
     Indication: THREATENED LABOUR
     Dosage: 6 MG; QH; IV
     Route: 042
     Dates: start: 20070209, end: 20070212
  2. BETAMETHASONE [Suspect]
     Indication: DRUG USE FOR UNKNOWN INDICATION
     Dosage: 12 MG; QD; IV
     Route: 042
     Dates: start: 20070209, end: 20070211

REACTIONS (6)
  - ACUTE PULMONARY OEDEMA [None]
  - CHEST PAIN [None]
  - DRUG EXPOSURE DURING PREGNANCY [None]
  - HYPOXIA [None]
  - LUNG DISORDER [None]
  - SINUS TACHYCARDIA [None]
